FAERS Safety Report 8605676-0 (Version None)
Quarter: 2012Q3

REPORT INFORMATION
  Report Type: 
  Country: None (occurrence: None)
  Receive Date: 20120820
  Receipt Date: 20120807
  Transmission Date: 20120928
  Serious: Yes (Hospitalization)
  Sender: FDA-Public Use
  Company Number: BE-ROCHE-1018671

PATIENT
  Sex: Male
  Weight: 84 kg

DRUGS (3)
  1. BI 201335 (HCV PROTEASE INHIBITOR) [Suspect]
     Indication: HEPATITIS C
     Route: 048
     Dates: start: 20111110, end: 20111127
  2. PEGASYS [Suspect]
     Indication: HEPATITIS C
     Dosage: LAST DATE OF ADMINISTRATION: 27 NOV 2011
     Route: 058
     Dates: start: 20111110, end: 20111127
  3. COPEGUS [Suspect]
     Indication: HEPATITIS C
     Dosage: LAST DATE OF ADMINISTRATION: 27 NOV 2011
     Route: 048
     Dates: start: 20111110, end: 20111127

REACTIONS (9)
  - KERATOSIS FOLLICULAR [None]
  - PYREXIA [None]
  - BACK PAIN [None]
  - HEADACHE [None]
  - MYALGIA [None]
  - NECK PAIN [None]
  - DYSURIA [None]
  - GASTROENTERITIS [None]
  - BALANITIS [None]
